FAERS Safety Report 8318708 (Version 3)
Quarter: 2013Q1

REPORT INFORMATION
  Report Type: Spontaneous
  Country: US (occurrence: US)
  Receive Date: 20120103
  Receipt Date: 20130221
  Transmission Date: 20140127
  Serious: Yes (Life-Threatening, Congenital Anomaly, Other)
  Sender: FDA-Public Use
  Company Number: US-PFIZER INC-2011289482

PATIENT
  Sex: Female
  Weight: 5 kg

DRUGS (27)
  1. ZOLOFT [Suspect]
     Indication: DEPRESSION
     Dosage: UNK
     Route: 064
     Dates: start: 20050623
  2. ZOLOFT [Suspect]
     Indication: ANXIETY
     Dosage: 25 MG, 1X/DAY
     Route: 064
     Dates: start: 20050811, end: 200508
  3. ZOLOFT [Suspect]
     Dosage: 50 MG, 1X/DAY
     Route: 064
     Dates: start: 200508
  4. ZOLOFT [Suspect]
     Dosage: 50 MG, 1X/DAY
     Route: 064
     Dates: start: 20051006
  5. ZOLOFT [Suspect]
     Dosage: 50 MG, 1X/DAY
     Route: 064
     Dates: start: 20051117
  6. HUMULIN [Concomitant]
     Dosage: UNK
     Route: 064
     Dates: start: 20050707
  7. PRENATAL VITAMINS [Concomitant]
     Dosage: UNK
     Route: 064
  8. DHA [Concomitant]
     Dosage: UNK
     Route: 064
  9. PROZAC [Concomitant]
     Dosage: UNK
     Route: 064
  10. WELLBUTRIN [Concomitant]
     Dosage: UNK
     Route: 064
  11. GLUCOPHAGE [Concomitant]
     Dosage: UNK
     Route: 064
  12. GLUCOTROL XL [Concomitant]
     Dosage: UNK
     Route: 064
  13. LORTAB [Concomitant]
     Dosage: UNK
     Route: 064
  14. MACROCID [Concomitant]
     Dosage: UNK
     Route: 064
  15. AMBIEN [Concomitant]
     Dosage: UNK
     Route: 064
  16. FLUCONAZOLE [Concomitant]
     Dosage: UNK
     Route: 064
  17. TERAZOL [Concomitant]
     Dosage: UNK
     Route: 064
  18. RISPERDAL [Concomitant]
     Dosage: UNK
     Route: 064
  19. AVANDIA [Concomitant]
     Dosage: UNK
     Route: 064
  20. IBUPROFEN [Concomitant]
     Dosage: UNK
     Route: 064
  21. BENADRYL [Concomitant]
     Dosage: UNK
     Route: 064
  22. TYLENOL [Concomitant]
     Dosage: UNK
     Route: 064
  23. AZITHROMAX [Concomitant]
     Dosage: UNK
     Route: 064
  24. ROCEPHIN [Concomitant]
     Dosage: UNK
     Route: 064
  25. PHENERGAN [Concomitant]
     Dosage: UNK
     Route: 064
  26. DIFLUCAN [Concomitant]
     Dosage: UNK
     Route: 064
  27. NYSTATIN [Concomitant]
     Dosage: UNK
     Route: 064

REACTIONS (4)
  - Maternal exposure timing unspecified [Unknown]
  - Pulmonary valve stenosis [Recovered/Resolved]
  - Pulmonary valve incompetence [Recovered/Resolved]
  - Gastrooesophageal reflux disease [Recovered/Resolved]
